FAERS Safety Report 7290533-5 (Version None)
Quarter: 2011Q1

REPORT INFORMATION
  Report Type: 
  Country: None (occurrence: None)
  Receive Date: 20110214
  Receipt Date: 20110210
  Transmission Date: 20110831
  Serious: Yes (Hospitalization)
  Sender: FDA-Public Use
  Company Number: US-SHIRE-ALL1-2010-05888

PATIENT
  Sex: Male
  Weight: 90.703 kg

DRUGS (4)
  1. FOSRENOL [Suspect]
     Indication: HYPERPHOSPHATAEMIA
     Dosage: 1000 MG, OTHER (WITH MEALS)
     Route: 048
     Dates: start: 20100201
  2. NEPHROCAPS [Concomitant]
     Indication: VITAMIN SUPPLEMENTATION
     Dosage: UNK MG, 1X/DAY:QD
     Route: 048
     Dates: start: 20090201
  3. FOLIC ACID [Concomitant]
     Indication: SUPPLEMENTATION THERAPY
     Dosage: UNK MG, 1X/DAY:QD
     Route: 048
  4. SYNTHROID [Concomitant]
     Indication: ASTHENIA
     Dosage: UNK MG, 1X/DAY:QD
     Route: 048

REACTIONS (2)
  - MYOCARDIAL INFARCTION [None]
  - NAUSEA [None]
